FAERS Safety Report 8960617 (Version 1)
Quarter: 2012Q4

REPORT INFORMATION
  Report Type: 
  Country: US (occurrence: US)
  Receive Date: 20121212
  Receipt Date: 20121212
  Transmission Date: 20130627
  Serious: Yes (Hospitalization, Other)
  Sender: FDA-Public Use
  Company Number: US-ROXANE LABORATORIES, INC.-2012-BI-02643GD

PATIENT
  Sex: Female

DRUGS (4)
  1. PREDNISONE [Suspect]
     Indication: MYASTHENIA GRAVIS
     Dosage: 5 mg
  2. PREDNISONE [Suspect]
     Dosage: 60 mg
  3. RITUXIMAB [Suspect]
     Indication: MYASTHENIA GRAVIS
     Dosage: 375 mg/mE2, total of 4 cycles
  4. PYROSTIGMINE BROMIDE [Concomitant]
     Indication: MYASTHENIA GRAVIS
     Dosage: 180 mg

REACTIONS (14)
  - Mastoiditis [Recovered/Resolved]
  - Hypogammaglobulinaemia [Recovered/Resolved]
  - Deafness unilateral [Unknown]
  - Moraxella infection [Unknown]
  - Ear infection staphylococcal [Unknown]
  - Impaired healing [Recovered/Resolved]
  - Facial pain [Recovered/Resolved]
  - Otorrhoea [Recovered/Resolved]
  - Pyrexia [Recovered/Resolved]
  - Chills [Recovered/Resolved]
  - Headache [Unknown]
  - Musculoskeletal stiffness [Unknown]
  - Photophobia [Unknown]
  - Nausea [Unknown]
